FAERS Safety Report 22651113 (Version 6)
Quarter: 2023Q4

REPORT INFORMATION
  Report Type: Report from Study
  Country: HK (occurrence: None)
  Receive Date: 20230628
  Receipt Date: 20231016
  Transmission Date: 20240109
  Serious: Yes (Death, Hospitalization)
  Sender: FDA-Public Use
  Company Number: HK-ROCHE-3372987

PATIENT
  Age: 71 Year
  Sex: Male
  Weight: 47.2 kg

DRUGS (40)
  1. TIRAGOLUMAB [Suspect]
     Active Substance: TIRAGOLUMAB
     Indication: Non-small cell lung cancer metastatic
     Dosage: ON 30/MAY/2023, MOST RECENT DOSE OF TIRAGOLUMAB 600 MG PRIOR TO AE/SAE.
     Route: 042
     Dates: start: 20230201
  2. ATEZOLIZUMAB [Suspect]
     Active Substance: ATEZOLIZUMAB
     Indication: Non-small cell lung cancer metastatic
     Dosage: ON 30/MAY/2023, MOST RECENT DOSE OF ATEZOLIZUMAB 200 ML  PRIOR TO AE/SAE
     Route: 041
     Dates: start: 20230201
  3. CARBOPLATIN [Suspect]
     Active Substance: CARBOPLATIN
     Indication: Non-small cell lung cancer metastatic
     Route: 042
     Dates: start: 20230207
  4. CARBOPLATIN [Suspect]
     Active Substance: CARBOPLATIN
     Dosage: ON 10/MAY/2023, MOST RECENT DOSE OF STUDY DRUG CARBOPLATIN PRIOR TO AE/SAE?DOSE LAST STUDY DRUG ADMI
     Route: 042
  5. PEMETREXED [Suspect]
     Active Substance: PEMETREXED
     Indication: Non-small cell lung cancer metastatic
     Route: 042
     Dates: start: 20230207
  6. PEMETREXED [Suspect]
     Active Substance: PEMETREXED
     Dosage: ON 30/MAY/2023, MOST RECENT DOSE OF STUDY DRUG PEMETREXED ADMINISTERED PRIOR TO AE/SAE, LAST DOSE ST
     Route: 042
  7. FOLIC ACID [Concomitant]
     Active Substance: FOLIC ACID
     Route: 048
     Dates: start: 20230125
  8. BENZYDAMINE HYDROCHLORIDE [Concomitant]
     Active Substance: BENZYDAMINE HYDROCHLORIDE
     Route: 048
     Dates: start: 20230201
  9. LOPERAMIDE [Concomitant]
     Active Substance: LOPERAMIDE
     Route: 048
     Dates: start: 20230201
  10. BETAMETHASONE [Concomitant]
     Active Substance: BETAMETHASONE
     Dosage: DOSE: 1 OTHER
     Route: 061
     Dates: start: 20230201
  11. AQUA [Concomitant]
     Dosage: DOSE: 1 OTHER
     Route: 061
     Dates: start: 20230201
  12. DOCUSATE [Concomitant]
     Active Substance: DOCUSATE
     Route: 048
     Dates: start: 20230301
  13. DOCUSATE [Concomitant]
     Active Substance: DOCUSATE
     Route: 048
     Dates: start: 20230530, end: 20230619
  14. DOCUSATE [Concomitant]
     Active Substance: DOCUSATE
     Route: 048
     Dates: start: 20230510, end: 20230529
  15. LECITHIN [Concomitant]
     Active Substance: LECITHIN
     Dosage: DOSE: 1 OTHER
     Route: 061
     Dates: start: 20230201
  16. SENNOSIDES [Concomitant]
     Active Substance: SENNOSIDES
     Route: 048
     Dates: start: 20230301
  17. SENNOSIDES [Concomitant]
     Active Substance: SENNOSIDES
     Route: 048
     Dates: start: 20230510, end: 20230529
  18. SENNOSIDES [Concomitant]
     Active Substance: SENNOSIDES
     Route: 048
     Dates: start: 20230530, end: 20230619
  19. FAMOTIDINE [Concomitant]
     Active Substance: FAMOTIDINE
     Route: 048
     Dates: start: 20230228
  20. FAMOTIDINE [Concomitant]
     Active Substance: FAMOTIDINE
     Route: 048
     Dates: start: 20230530, end: 20230601
  21. DEXAMETHASONE [Concomitant]
     Active Substance: DEXAMETHASONE
     Route: 048
     Dates: start: 20230228
  22. DEXAMETHASONE [Concomitant]
     Active Substance: DEXAMETHASONE
     Route: 048
     Dates: start: 20230530, end: 20230601
  23. NETUPITANT [Concomitant]
     Active Substance: NETUPITANT
     Route: 048
     Dates: start: 20230301
  24. NETUPITANT [Concomitant]
     Active Substance: NETUPITANT
     Route: 048
     Dates: start: 20230530, end: 20230530
  25. PALONOSETRON [Concomitant]
     Active Substance: PALONOSETRON
     Route: 048
     Dates: start: 20230301
  26. APIXABAN [Concomitant]
     Active Substance: APIXABAN
     Route: 048
     Dates: start: 20230418
  27. APIXABAN [Concomitant]
     Active Substance: APIXABAN
     Route: 048
     Dates: start: 20230530, end: 20230622
  28. FILGRASTIM [Concomitant]
     Active Substance: FILGRASTIM
     Route: 030
     Dates: start: 20230423
  29. FILGRASTIM [Concomitant]
     Active Substance: FILGRASTIM
     Dosage: 30 OTHER
     Route: 030
     Dates: start: 20230530, end: 20230605
  30. FILGRASTIM [Concomitant]
     Active Substance: FILGRASTIM
     Dosage: 30MU/0.5ML
     Route: 030
     Dates: start: 20230423
  31. LEVOFLOXACIN [Concomitant]
     Active Substance: LEVOFLOXACIN
     Route: 048
     Dates: start: 20230514, end: 20230523
  32. LEVOFLOXACIN [Concomitant]
     Active Substance: LEVOFLOXACIN
     Route: 048
     Dates: start: 20230603, end: 20230612
  33. ACETAMINOPHEN [Concomitant]
     Active Substance: ACETAMINOPHEN
     Route: 048
     Dates: start: 20230619, end: 20230622
  34. MORPHINE SULFATE [Concomitant]
     Active Substance: MORPHINE SULFATE
     Indication: Dyspnoea
     Route: 030
     Dates: start: 20230619, end: 20230619
  35. MIDAZOLAM HYDROCHLORIDE [Concomitant]
     Active Substance: MIDAZOLAM HYDROCHLORIDE
     Indication: Dyspnoea
     Route: 030
     Dates: start: 20230619, end: 20230622
  36. DEXTROSE [Concomitant]
     Active Substance: DEXTROSE\DEXTROSE MONOHYDRATE
     Route: 042
     Dates: start: 20230619, end: 20230622
  37. PANTOPRAZOLE SODIUM [Concomitant]
     Active Substance: PANTOPRAZOLE SODIUM
     Route: 042
     Dates: start: 20230619, end: 20230622
  38. TRAMADOL [Concomitant]
     Active Substance: TRAMADOL\TRAMADOL HYDROCHLORIDE
     Indication: Chest pain
     Route: 048
     Dates: start: 20230619, end: 20230622
  39. SENNA [Concomitant]
     Active Substance: SENNA LEAF\SENNOSIDES\SENNOSIDES A AND B
     Indication: Constipation
     Route: 048
     Dates: start: 20230619, end: 20230622
  40. GLYCERIN [Concomitant]
     Active Substance: GLYCERIN
     Dosage: 1 OTHER
     Route: 061
     Dates: start: 20230201

REACTIONS (1)
  - Pneumonia [Fatal]

NARRATIVE: CASE EVENT DATE: 20230619
